FAERS Safety Report 7243664-X (Version None)
Quarter: 2011Q1

REPORT INFORMATION
  Report Type: 
  Country: None (occurrence: None)
  Receive Date: 20110125
  Receipt Date: 20110120
  Transmission Date: 20110831
  Serious: Yes (Life-Threatening, Other)
  Sender: FDA-Public Use
  Company Number: PHHY2011BR04729

PATIENT
  Sex: Female

DRUGS (3)
  1. BUDESONIDE W/FORMOTEROL FUMARATE [Concomitant]
     Indication: EMPHYSEMA
     Dosage: 1 INHALATION BID
     Dates: start: 20080101
  2. EXELON [Suspect]
     Indication: FRONTOTEMPORAL DEMENTIA
     Dosage: 1 DF, BID
     Route: 048
     Dates: start: 20101201
  3. CITALOPRAM [Concomitant]
     Dosage: 1 DF, QD
     Route: 048

REACTIONS (6)
  - DIARRHOEA [None]
  - CONVULSION [None]
  - NAUSEA [None]
  - APPARENT DEATH [None]
  - TREMOR [None]
  - VOMITING [None]
